FAERS Safety Report 7912736-6 (Version None)
Quarter: 2011Q4

REPORT INFORMATION
  Report Type: 
  Country: None (occurrence: None)
  Receive Date: 20111114
  Receipt Date: 20111108
  Transmission Date: 20120403
  Serious: Yes (Other)
  Sender: FDA-Public Use
  Company Number: JP-PFIZER INC-2011252686

PATIENT
  Age: 81 Year
  Sex: Female

DRUGS (3)
  1. ZYVOX [Suspect]
     Indication: SOFT TISSUE INFECTION
     Dosage: 1200 MG, DAILY
     Route: 048
     Dates: start: 20110928
  2. HEPARIN [Concomitant]
  3. WARFARIN [Concomitant]

REACTIONS (2)
  - DEPRESSED LEVEL OF CONSCIOUSNESS [None]
  - PLATELET COUNT DECREASED [None]
